FAERS Safety Report 23732955 (Version 3)
Quarter: 2024Q2

REPORT INFORMATION
  Report Type: Spontaneous
  Country: US (occurrence: US)
  Receive Date: 20240411
  Receipt Date: 20240619
  Transmission Date: 20240716
  Serious: No
  Sender: FDA-Public Use
  Company Number: US-PFIZER INC-202400083440

PATIENT
  Age: 63 Year
  Sex: Male
  Weight: 102.06 kg

DRUGS (3)
  1. ESTRING [Suspect]
     Active Substance: ESTRADIOL
     Dosage: 2 MG
  2. HERBALS\WITHANIA SOMNIFERA ROOT [Concomitant]
     Active Substance: HERBALS\WITHANIA SOMNIFERA ROOT
     Indication: Blood testosterone decreased
     Dosage: 1000 MG, DAILY (BEEN TAKING FOR 2 YEARS)
     Route: 048
     Dates: start: 2022
  3. HERBALS\WITHANIA SOMNIFERA ROOT [Concomitant]
     Active Substance: HERBALS\WITHANIA SOMNIFERA ROOT
     Indication: Hormone therapy

REACTIONS (2)
  - Exposure via partner [Recovering/Resolving]
  - Blood oestrogen increased [Recovering/Resolving]

NARRATIVE: CASE EVENT DATE: 20231205
